FAERS Safety Report 7316396-7 (Version None)
Quarter: 2011Q1

REPORT INFORMATION
  Report Type: 
  Country: None (occurrence: None)
  Receive Date: 20110225
  Receipt Date: 20110221
  Transmission Date: 20110831
  Serious: Yes (Hospitalization)
  Sender: FDA-Public Use
  Company Number: US-RB-018284-10

PATIENT
  Age: 59 Year
  Sex: Female

DRUGS (1)
  1. SUBOXONE [Suspect]
     Indication: PRODUCT USED FOR UNKNOWN INDICATION
     Dosage: SUBLINGUAL FILM- DOSING INFORMATION UNKNOWN
     Route: 065

REACTIONS (7)
  - CHEST PAIN [None]
  - NICOTINE DEPENDENCE [None]
  - DRUG EFFECT DECREASED [None]
  - WEIGHT INCREASED [None]
  - TOBACCO USER [None]
  - ANXIETY [None]
  - HOSPITALISATION [None]
